FAERS Safety Report 23229692 (Version 1)
Quarter: 2023Q4

REPORT INFORMATION
  Report Type: Spontaneous
  Country: US (occurrence: None)
  Receive Date: 20231127
  Receipt Date: 20231127
  Transmission Date: 20240109
  Serious: No
  Sender: FDA-Public Use
  Company Number: US-ROCHE-3373384

PATIENT
  Age: 84 Year
  Sex: Male

DRUGS (4)
  1. PULMOZYME [Suspect]
     Active Substance: DORNASE ALFA
     Indication: Pleural effusion
     Dosage: ADMINISTERED ONCE
     Route: 042
     Dates: start: 20230620, end: 20230620
  2. PULMOZYME [Suspect]
     Active Substance: DORNASE ALFA
     Indication: Catheter placement
  3. ACTIVASE [Suspect]
     Active Substance: ALTEPLASE
     Indication: Pleural effusion
     Dosage: ADMINISTERED ONCE
     Route: 042
     Dates: start: 20230620, end: 20230620
  4. ACTIVASE [Suspect]
     Active Substance: ALTEPLASE
     Indication: Catheter placement

REACTIONS (3)
  - Off label use [Unknown]
  - Incorrect route of product administration [Unknown]
  - No adverse event [Unknown]

NARRATIVE: CASE EVENT DATE: 20230620
